FAERS Safety Report 6515578-1 (Version None)
Quarter: 2009Q4

REPORT INFORMATION
  Report Type: 
  Country: None (occurrence: None)
  Receive Date: 20091223
  Receipt Date: 20091216
  Transmission Date: 20100525
  Serious: Yes (Death)
  Sender: FDA-Public Use
  Company Number: CH-CELGENEUS-151-21880-09100230

PATIENT
  Sex: Male
  Weight: 75 kg

DRUGS (7)
  1. REVLIMID [Suspect]
     Indication: HODGKIN'S DISEASE
     Route: 048
  2. REVLIMID [Suspect]
     Route: 048
     Dates: start: 20090615, end: 20090622
  3. REVLIMID [Suspect]
     Route: 048
     Dates: start: 20090206, end: 20090216
  4. ASPIRIN [Concomitant]
     Indication: DRUG USE FOR UNKNOWN INDICATION
     Route: 065
     Dates: start: 20090615, end: 20090622
  5. PRAVALOTIN [Concomitant]
     Indication: DRUG USE FOR UNKNOWN INDICATION
     Route: 065
  6. PREDNISONE [Concomitant]
     Indication: DRUG USE FOR UNKNOWN INDICATION
     Route: 065
     Dates: start: 20090615, end: 20090622
  7. PREDNISONE [Concomitant]
     Route: 065
     Dates: start: 20090206, end: 20090216

REACTIONS (2)
  - DERMATOSIS [None]
  - HODGKIN'S DISEASE [None]
